FAERS Safety Report 8377732-6 (Version None)
Quarter: 2012Q2

REPORT INFORMATION
  Report Type: 
  Country: None (occurrence: None)
  Receive Date: 20120522
  Receipt Date: 20120511
  Transmission Date: 20120825
  Serious: Yes (Other)
  Sender: FDA-Public Use
  Company Number: FR-VIIV HEALTHCARE LIMITED-B0800717A

PATIENT
  Sex: Female

DRUGS (5)
  1. CLORAZEPATE DIPOTASSIUM [Concomitant]
     Indication: INSOMNIA
     Route: 048
  2. ABACAVIR SULFATE/LAMIVUDINE [Suspect]
     Indication: HIV INFECTION
     Dosage: 1UNIT PER DAY
     Route: 048
     Dates: start: 20060123
  3. NORVIR [Suspect]
     Indication: HIV INFECTION
     Dosage: 1UNIT PER DAY
     Route: 048
     Dates: start: 20051205
  4. LEVOTHYROXINE SODIUM [Concomitant]
     Indication: HYPOTHYROIDISM
     Route: 048
  5. FOSAMPRENAVIR CALCIUM [Suspect]
     Indication: HIV INFECTION
     Dosage: 1UNIT TWICE PER DAY
     Route: 048
     Dates: start: 20051205

REACTIONS (6)
  - HYPERCHOLESTEROLAEMIA [None]
  - GASTROINTESTINAL DISORDER [None]
  - HEADACHE [None]
  - DYSLIPIDAEMIA [None]
  - VERTIGO [None]
  - HYPERTRIGLYCERIDAEMIA [None]
